FAERS Safety Report 10208887 (Version 1)
Quarter: 2014Q2

REPORT INFORMATION
  Report Type: Spontaneous
  Country: US (occurrence: US)
  Receive Date: 20140530
  Receipt Date: 20140530
  Transmission Date: 20141212
  Serious: Yes (Other)
  Sender: FDA-Public Use
  Company Number: US-ALLERGAN-1411855US

PATIENT
  Age: 73 Year
  Sex: Female

DRUGS (2)
  1. PRED FORTE [Suspect]
     Indication: PRODUCT USED FOR UNKNOWN INDICATION
  2. COMBIGAN[R] [Suspect]
     Indication: PRODUCT USED FOR UNKNOWN INDICATION

REACTIONS (2)
  - Cataract [Unknown]
  - Vision blurred [Unknown]
